FAERS Safety Report 9253307 (Version 2)
Quarter: 2022Q2

REPORT INFORMATION
  Report Type: Spontaneous
  Country: US (occurrence: US)
  Receive Date: 20130424
  Receipt Date: 20220425
  Transmission Date: 20220721
  Serious: Yes (Hospitalization)
  Sender: FDA-Public Use
  Company Number: US-MYLANLABS-2013S1008597

PATIENT
  Age: 65 Year
  Sex: Female

DRUGS (6)
  1. CARBOPLATIN [Suspect]
     Active Substance: CARBOPLATIN
     Indication: Ovarian cancer
     Dosage: UNK
     Route: 065
  2. DOXORUBICIN HYDROCHLORIDE [Suspect]
     Active Substance: DOXORUBICIN HYDROCHLORIDE
     Indication: Ovarian cancer
     Dosage: UNK
     Route: 065
     Dates: start: 200809, end: 200911
  3. CISPLATIN [Suspect]
     Active Substance: CISPLATIN
     Indication: Ovarian cancer
     Dosage: UNK
     Route: 033
  4. BEVACIZUMAB [Suspect]
     Active Substance: BEVACIZUMAB
     Indication: Ovarian cancer
     Dosage: UNK
     Route: 065
     Dates: start: 200809, end: 200911
  5. GEMCITABINE [Suspect]
     Active Substance: GEMCITABINE
     Indication: Ovarian cancer
     Dosage: UNK
     Route: 065
  6. PACLITAXEL [Concomitant]
     Active Substance: PACLITAXEL
     Indication: Ovarian cancer
     Dosage: UNK
     Route: 065

REACTIONS (2)
  - Chronic kidney disease [Recovering/Resolving]
  - Thrombotic microangiopathy [Recovering/Resolving]
